FAERS Safety Report 8421760-9 (Version None)
Quarter: 2012Q2

REPORT INFORMATION
  Report Type: 
  Country: None (occurrence: None)
  Receive Date: 20120608
  Receipt Date: 20120531
  Transmission Date: 20120825
  Serious: Yes (Hospitalization, Other)
  Sender: FDA-Public Use
  Company Number: US-ASTRAZENECA-2011SE32268

PATIENT
  Age: 9 Year
  Sex: Male
  Weight: 31.8 kg

DRUGS (5)
  1. ZANTAC [Concomitant]
     Dates: start: 20100801, end: 20111001
  2. PREVACID [Concomitant]
     Indication: GASTROOESOPHAGEAL REFLUX DISEASE
     Dates: start: 20080201
  3. NEXIUM [Suspect]
     Indication: GASTROOESOPHAGEAL REFLUX DISEASE
     Route: 048
     Dates: start: 20090101
  4. ZANTAC [Concomitant]
     Dates: start: 20020801, end: 20030301
  5. NEXIUM [Suspect]
     Route: 048
     Dates: start: 20100301, end: 20111101

REACTIONS (3)
  - WRIST FRACTURE [None]
  - HAND FRACTURE [None]
  - UPPER LIMB FRACTURE [None]
